FAERS Safety Report 9639921 (Version 3)
Quarter: 2013Q4

REPORT INFORMATION
  Report Type: Spontaneous
  Country: JP (occurrence: JP)
  Receive Date: 20131023
  Receipt Date: 20131104
  Transmission Date: 20140711
  Serious: Yes (Other)
  Sender: FDA-Public Use
  Company Number: JP-PFIZER INC-2013302388

PATIENT
  Age: 86 Year
  Sex: Female

DRUGS (3)
  1. CELECOX [Suspect]
     Indication: BACK PAIN
     Dosage: 200 MG, DAILY
     Route: 048
     Dates: start: 20131010, end: 201310
  2. AMLODIPINE [Concomitant]
     Dosage: UNK
     Route: 048
  3. PRAVASTATIN SODIUM [Concomitant]
     Dosage: UNK
     Route: 048

REACTIONS (1)
  - Urinary retention [Not Recovered/Not Resolved]
